FAERS Safety Report 7994426-7 (Version None)
Quarter: 2011Q4

REPORT INFORMATION
  Report Type: 
  Country: None (occurrence: None)
  Receive Date: 20111220
  Receipt Date: 20111025
  Transmission Date: 20120403
  Serious: Yes (Other)
  Sender: FDA-Public Use
  Company Number: US-NAPPMUNDI-USA-2011-0079785

PATIENT
  Sex: Male

DRUGS (2)
  1. OXYCONTIN [Suspect]
     Indication: COMPLEX REGIONAL PAIN SYNDROME
  2. OXYCONTIN [Suspect]
     Indication: NERVE INJURY
     Dosage: UNK
     Dates: start: 19960101, end: 20090401

REACTIONS (3)
  - DRUG DEPENDENCE [None]
  - IRRITABLE BOWEL SYNDROME [None]
  - DIABETES MELLITUS [None]
